FAERS Safety Report 5655807-X (Version None)
Quarter: 2008Q1

REPORT INFORMATION
  Report Type: 
  Country: None (occurrence: None)
  Receive Date: 20080307
  Receipt Date: 20080226
  Transmission Date: 20080703
  Serious: Yes (Life-Threatening)
  Sender: FDA-Public Use
  Company Number: GB-PFIZER INC-2008012991

PATIENT
  Age: 37 Year
  Sex: Female
  Weight: 105 kg

DRUGS (7)
  1. PHENYTOIN [Suspect]
     Indication: STATUS EPILEPTICUS
     Route: 042
  2. LAMOTRIGINE [Suspect]
     Indication: EPILEPSY
     Route: 048
     Dates: start: 20050101, end: 20080101
  3. KEPPRA [Suspect]
     Indication: EPILEPSY
     Route: 048
     Dates: start: 20050101, end: 20080101
  4. AUGMENTIN '125' [Concomitant]
     Indication: LOWER RESPIRATORY TRACT INFECTION
     Route: 048
  5. LORAZEPAM [Concomitant]
     Indication: STATUS EPILEPTICUS
     Dates: start: 20080101, end: 20080101
  6. SUXAMETHONIUM [Concomitant]
     Route: 042
  7. THIOPENTONE [Concomitant]
     Route: 042

REACTIONS (2)
  - ACUTE HEPATIC FAILURE [None]
  - RHABDOMYOLYSIS [None]
